FAERS Safety Report 14849560 (Version 4)
Quarter: 2018Q2

REPORT INFORMATION
  Report Type: Spontaneous
  Country: BR (occurrence: BR)
  Receive Date: 20180504
  Receipt Date: 20180531
  Transmission Date: 20180711
  Serious: Yes (Other)
  Sender: FDA-Public Use
  Company Number: PHHY2018BR000595

PATIENT
  Sex: Female
  Weight: 67 kg

DRUGS (10)
  1. METHOTREXATE. [Concomitant]
     Active Substance: METHOTREXATE
     Indication: RHEUMATOID ARTHRITIS
     Dosage: 5 DF, QW
     Route: 048
  2. GLIFAGE [Concomitant]
     Active Substance: METFORMIN HYDROCHLORIDE
     Indication: GLUCOSE TOLERANCE IMPAIRED
     Dosage: 2 DF, QD
     Route: 048
  3. ADDERA D3 [Concomitant]
     Active Substance: CHOLECALCIFEROL
     Indication: SUPPLEMENTATION THERAPY
     Dosage: 1 DF, QW
     Route: 048
  4. ENDOFOLIN [Concomitant]
     Active Substance: FOLIC ACID
     Indication: PRODUCT USED FOR UNKNOWN INDICATION
     Dosage: 2 DF, QW
     Route: 048
  5. FORASEQ [Suspect]
     Active Substance: BUDESONIDE\FORMOTEROL FUMARATE
     Indication: ASTHMA
  6. SEEBRI [Concomitant]
     Active Substance: GLYCOPYRRONIUM
     Indication: ASTHMA
     Dosage: 1 DF, QD
     Route: 055
  7. ESTREVA [Concomitant]
     Active Substance: ESTRADIOL
     Indication: HORMONE REPLACEMENT THERAPY
     Dosage: 1 APPLICATION, QD
     Route: 048
  8. ZETSIM [Concomitant]
     Active Substance: EZETIMIBE\SIMVASTATIN
     Indication: THYROGLOBULIN INCREASED
     Dosage: 1 DF, QD
     Route: 048
  9. FORASEQ [Suspect]
     Active Substance: BUDESONIDE\FORMOTEROL FUMARATE
     Indication: EMPHYSEMA
     Dosage: UNK UNK, BID
     Route: 055
  10. OSCAL D [Concomitant]
     Active Substance: CALCIUM CARBONATE\CHOLECALCIFEROL
     Indication: SUPPLEMENTATION THERAPY
     Dosage: 3 DF, 3 DAYS A WEEK
     Route: 048

REACTIONS (4)
  - Drug dependence [Not Recovered/Not Resolved]
  - Fear [Not Recovered/Not Resolved]
  - Dyspnoea [Not Recovered/Not Resolved]
  - Thyroglobulin increased [Not Recovered/Not Resolved]
